FAERS Safety Report 5012725-8 (Version None)
Quarter: 2006Q2

REPORT INFORMATION
  Report Type: 
  Country: None (occurrence: None)
  Receive Date: 20060530
  Receipt Date: 20060518
  Transmission Date: 20061013
  Serious: Yes (Life-Threatening, Hospitalization)
  Sender: FDA-Public Use
  Company Number: US-JNJFOC-20050307121

PATIENT
  Sex: Female
  Weight: 81.65 kg

DRUGS (28)
  1. REMICADE [Suspect]
     Route: 042
  2. REMICADE [Suspect]
     Indication: RHEUMATOID ARTHRITIS
     Route: 042
  3. METHOTREXATE [Concomitant]
     Indication: RHEUMATOID ARTHRITIS
  4. CELEBREX [Concomitant]
     Indication: RHEUMATOID ARTHRITIS
  5. MULTIVITAMIN [Concomitant]
  6. MULTIVITAMIN [Concomitant]
  7. MULTIVITAMIN [Concomitant]
  8. MULTIVITAMIN [Concomitant]
  9. MULTIVITAMIN [Concomitant]
  10. MULTIVITAMIN [Concomitant]
  11. MULTIVITAMIN [Concomitant]
  12. MULTIVITAMIN [Concomitant]
  13. SYNTHROID [Concomitant]
  14. CALCIUM WITH VITAMIN D [Concomitant]
  15. CALCIUM WITH VITAMIN D [Concomitant]
  16. CALCIUM WITH VITAMIN D [Concomitant]
  17. ZINC [Concomitant]
  18. CENTRUM SILVER [Concomitant]
  19. CENTRUM SILVER [Concomitant]
  20. CENTRUM SILVER [Concomitant]
  21. CENTRUM SILVER [Concomitant]
  22. CENTRUM SILVER [Concomitant]
  23. CENTRUM SILVER [Concomitant]
  24. CENTRUM SILVER [Concomitant]
  25. CENTRUM SILVER [Concomitant]
  26. ASCORBIC ACID [Concomitant]
  27. PEPCID AC [Concomitant]
  28. ALEVE (CAPLET) [Concomitant]

REACTIONS (6)
  - BETA HAEMOLYTIC STREPTOCOCCAL INFECTION [None]
  - EXTREMITY NECROSIS [None]
  - OVARIAN CANCER [None]
  - PNEUMONIA [None]
  - RENAL FAILURE [None]
  - SEPTIC SHOCK [None]
